FAERS Safety Report 19710991 (Version 1)
Quarter: 2021Q3

REPORT INFORMATION
  Report Type: Spontaneous
  Country: GB (occurrence: GB)
  Receive Date: 20210816
  Receipt Date: 20210816
  Transmission Date: 20211014
  Serious: Yes (Other)
  Sender: FDA-Public Use
  Company Number: GB-MYLANLABS-2021M1050403

PATIENT
  Age: 16 Year
  Sex: Male
  Weight: 76 kg

DRUGS (3)
  1. OLANZAPINE. [Suspect]
     Active Substance: OLANZAPINE
     Dosage: 7.5 MILLIGRAM
     Route: 048
     Dates: start: 2021
  2. OLANZAPINE. [Suspect]
     Active Substance: OLANZAPINE
     Indication: ACUTE PSYCHOSIS
     Dosage: 20 MILLIGRAM
     Route: 048
     Dates: start: 202103
  3. LORAZEPAM. [Concomitant]
     Active Substance: LORAZEPAM
     Indication: ILL-DEFINED DISORDER
     Dosage: UNK

REACTIONS (4)
  - Hyperprolactinaemia [Recovered/Resolved]
  - Dizziness [Unknown]
  - Hypersomnia [Recovered/Resolved]
  - Oculogyric crisis [Recovered/Resolved]

NARRATIVE: CASE EVENT DATE: 2021
